FAERS Safety Report 25643717 (Version 1)
Quarter: 2025Q3

REPORT INFORMATION
  Report Type: Spontaneous
  Country: US (occurrence: US)
  Receive Date: 20250805
  Receipt Date: 20250805
  Transmission Date: 20251021
  Serious: Yes (Death, Hospitalization)
  Sender: MYLAN
  Company Number: US-MYLANLABS-2025M1063411

PATIENT
  Age: 48 Year
  Sex: Male

DRUGS (24)
  1. ETOPOSIDE [Suspect]
     Active Substance: ETOPOSIDE
     Indication: Haemophagocytic lymphohistiocytosis
  2. ETOPOSIDE [Suspect]
     Active Substance: ETOPOSIDE
     Route: 065
  3. ETOPOSIDE [Suspect]
     Active Substance: ETOPOSIDE
     Route: 065
  4. ETOPOSIDE [Suspect]
     Active Substance: ETOPOSIDE
  5. MEROPENEM [Suspect]
     Active Substance: MEROPENEM
     Indication: Capnocytophaga infection
  6. MEROPENEM [Suspect]
     Active Substance: MEROPENEM
     Indication: Meningitis bacterial
     Route: 065
  7. MEROPENEM [Suspect]
     Active Substance: MEROPENEM
     Route: 065
  8. MEROPENEM [Suspect]
     Active Substance: MEROPENEM
  9. DEXAMETHASONE [Suspect]
     Active Substance: DEXAMETHASONE
     Indication: Haemophagocytic lymphohistiocytosis
  10. DEXAMETHASONE [Suspect]
     Active Substance: DEXAMETHASONE
     Route: 065
  11. DEXAMETHASONE [Suspect]
     Active Substance: DEXAMETHASONE
     Route: 065
  12. DEXAMETHASONE [Suspect]
     Active Substance: DEXAMETHASONE
  13. BACTRIM [Suspect]
     Active Substance: SULFAMETHOXAZOLE\TRIMETHOPRIM
     Indication: Capnocytophaga infection
  14. BACTRIM [Suspect]
     Active Substance: SULFAMETHOXAZOLE\TRIMETHOPRIM
     Indication: Meningitis bacterial
     Route: 065
  15. BACTRIM [Suspect]
     Active Substance: SULFAMETHOXAZOLE\TRIMETHOPRIM
     Route: 065
  16. BACTRIM [Suspect]
     Active Substance: SULFAMETHOXAZOLE\TRIMETHOPRIM
  17. GANCICLOVIR [Suspect]
     Active Substance: GANCICLOVIR
     Indication: Viral infection
  18. GANCICLOVIR [Suspect]
     Active Substance: GANCICLOVIR
     Route: 065
  19. GANCICLOVIR [Suspect]
     Active Substance: GANCICLOVIR
     Route: 065
  20. GANCICLOVIR [Suspect]
     Active Substance: GANCICLOVIR
  21. ISAVUCONAZOLE [Suspect]
     Active Substance: ISAVUCONAZOLE
     Indication: Aspergillus infection
  22. ISAVUCONAZOLE [Suspect]
     Active Substance: ISAVUCONAZOLE
     Route: 065
  23. ISAVUCONAZOLE [Suspect]
     Active Substance: ISAVUCONAZOLE
     Route: 065
  24. ISAVUCONAZOLE [Suspect]
     Active Substance: ISAVUCONAZOLE

REACTIONS (2)
  - Drug ineffective [Fatal]
  - Off label use [Unknown]
